FAERS Safety Report 26085946 (Version 1)
Quarter: 2025Q4

REPORT INFORMATION
  Report Type: Report from Study
  Country: MX (occurrence: MX)
  Receive Date: 20251125
  Receipt Date: 20251125
  Transmission Date: 20260117
  Serious: Yes (Other)
  Sender: ALEXION PHARMACEUTICALS
  Company Number: MX-AstraZeneca-CH-00956381A

PATIENT
  Age: 67 Year
  Sex: Female
  Weight: 43.5 kg

DRUGS (5)
  1. DAPAGLIFLOZIN\METFORMIN HYDROCHLORIDE [Suspect]
     Active Substance: DAPAGLIFLOZIN\METFORMIN HYDROCHLORIDE
     Indication: Type 2 diabetes mellitus
     Dosage: UNK, QD, IN THE MORNING
     Dates: start: 2024, end: 202507
  2. DAPAGLIFLOZIN\METFORMIN HYDROCHLORIDE [Suspect]
     Active Substance: DAPAGLIFLOZIN\METFORMIN HYDROCHLORIDE
     Dosage: 1 DOSAGE FORM, QD
     Dates: start: 2025, end: 20251014
  3. BUDESONIDE\FORMOTEROL\GLYCOPYRRONIUM [Suspect]
     Active Substance: BUDESONIDE\FORMOTEROL\GLYCOPYRRONIUM
     Indication: Pulmonary mass
     Dosage: 1 DOSAGE FORM, Q12H
     Dates: start: 20251014
  4. GLIMEPIRIDE [Concomitant]
     Active Substance: GLIMEPIRIDE
     Dosage: 2 MILLIGRAM, EVERY MORNING
     Dates: start: 20251015
  5. Fanter [Concomitant]
     Dosage: 10 MILLIGRAM, QD
     Dates: start: 20251015

REACTIONS (17)
  - Weight decreased [Unknown]
  - Bone pain [Recovered/Resolved]
  - Hypotension [Recovered/Resolved]
  - Burning sensation [Not Recovered/Not Resolved]
  - Malaise [Recovered/Resolved]
  - Chest pain [Recovered/Resolved]
  - Back pain [Recovered/Resolved]
  - Pain [Recovered/Resolved]
  - Pulmonary mass [Recovering/Resolving]
  - Off label use [Not Recovered/Not Resolved]
  - Headache [Recovered/Resolved]
  - Blood glucose abnormal [Recovered/Resolved]
  - Product use issue [Unknown]
  - Insomnia [Recovered/Resolved]
  - Feeling hot [Not Recovered/Not Resolved]
  - Reading disorder [Unknown]
  - Neuropathy peripheral [Unknown]

NARRATIVE: CASE EVENT DATE: 20250201
